FAERS Safety Report 7589443-5 (Version None)
Quarter: 2011Q3

REPORT INFORMATION
  Report Type: 
  Country: None (occurrence: None)
  Receive Date: 20110705
  Receipt Date: 20110627
  Transmission Date: 20111222
  Serious: Yes (Disabling)
  Sender: FDA-Public Use
  Company Number: DE-JNJFOC-20110611149

PATIENT
  Age: 91 Year
  Sex: Male

DRUGS (4)
  1. RISPERDAL [Suspect]
     Indication: PRODUCT USED FOR UNKNOWN INDICATION
     Route: 048
     Dates: start: 20100211, end: 20100214
  2. RISPERDAL [Suspect]
     Route: 048
     Dates: start: 20100215, end: 20100216
  3. RISPERDAL [Suspect]
     Route: 048
     Dates: start: 20100217, end: 20100222
  4. FOLATE [Concomitant]
     Route: 048
     Dates: start: 20100218

REACTIONS (1)
  - CEREBRAL INFARCTION [None]
